FAERS Safety Report 5410420-4 (Version None)
Quarter: 2007Q3

REPORT INFORMATION
  Report Type: 
  Country: None (occurrence: None)
  Receive Date: 20070808
  Receipt Date: 20070727
  Transmission Date: 20080115
  Serious: Yes (Other)
  Sender: FDA-Public Use
  Company Number: TCI2007A02363

PATIENT
  Age: 51 Year
  Sex: Male

DRUGS (4)
  1. ACTOS [Suspect]
     Indication: DIABETES MELLITUS
     Dosage: 15 GM (15 MG, 1 IN 1 D) PER ORAL
     Route: 048
     Dates: start: 20040305, end: 20070513
  2. BLOPRESS               (CANDESARTAN CILEXETIL) [Concomitant]
  3. BASEN OD         (VOGLIBOSE) [Concomitant]
  4. ENALAPRIL MALEATE [Concomitant]

REACTIONS (9)
  - DYSPNOEA [None]
  - FACE OEDEMA [None]
  - MALAISE [None]
  - NASAL CONGESTION [None]
  - PO2 DECREASED [None]
  - PULMONARY OEDEMA [None]
  - PYREXIA [None]
  - WEIGHT INCREASED [None]
  - WHEEZING [None]
